FAERS Safety Report 22091690 (Version 1)
Quarter: 2023Q1

REPORT INFORMATION
  Report Type: Spontaneous
  Country: NL (occurrence: NL)
  Receive Date: 20230314
  Receipt Date: 20230314
  Transmission Date: 20230417
  Serious: Yes (Life-Threatening, Other)
  Sender: FDA-Public Use
  Company Number: NL-LRB-00868334

PATIENT
  Sex: Male
  Weight: 71 kg

DRUGS (4)
  1. OXYCODONE [Suspect]
     Active Substance: OXYCODONE
     Indication: Fracture pain
     Dosage: 5 MILLIGRAM, TWO TIMES A DAY (OXYCONTIN 5MG 2DD1 EN OXYNORM 5 MG Z.N. MAX 4DD1)
     Route: 065
     Dates: start: 20220131, end: 20230102
  2. OXYCODONE HYDROCHLORIDE [Suspect]
     Active Substance: OXYCODONE HYDROCHLORIDE
     Indication: Fracture pain
     Dosage: UNK ( OXYCONTIN 5MG 2DD1 EN OXYNORM 5 MG Z.N. MAX 4DD1)
     Route: 065
     Dates: start: 20220131, end: 20230102
  3. METFORMIN HYDROCHLORIDE [Concomitant]
     Active Substance: METFORMIN HYDROCHLORIDE
     Indication: Product used for unknown indication
     Dosage: TABLET, 500 MG (MILLIGRAM)
     Route: 065
  4. CHOLECALCIFEROL [Concomitant]
     Active Substance: CHOLECALCIFEROL
     Indication: Product used for unknown indication
     Dosage: UNK (CAPSULE, 5600 UNITS)
     Route: 065

REACTIONS (2)
  - Respiratory depression [Recovering/Resolving]
  - Depressed level of consciousness [Unknown]
